FAERS Safety Report 9709105 (Version 3)
Quarter: 2014Q1

REPORT INFORMATION
  Report Type: Spontaneous
  Country: US (occurrence: US)
  Receive Date: 20131125
  Receipt Date: 20140225
  Transmission Date: 20141002
  Serious: Yes (Other)
  Sender: FDA-Public Use
  Company Number: US-ACORDA-ACO_36167_2013

PATIENT
  Age: 78 Year
  Sex: Female
  Weight: 68.27 kg

DRUGS (11)
  1. AMPYRA [Suspect]
     Indication: GAIT DISTURBANCE
     Dosage: 10 MG, BID
     Route: 048
     Dates: start: 2013, end: 2013
  2. AVONEX [Concomitant]
     Indication: MULTIPLE SCLEROSIS
     Dosage: 1 G, Q 6 HOURS
     Route: 030
     Dates: start: 2001
  3. LEVOTHYROXINE SODIUM [Concomitant]
     Indication: PRODUCT USED FOR UNKNOWN INDICATION
     Route: 048
  4. LISINOPRIL [Concomitant]
     Indication: PRODUCT USED FOR UNKNOWN INDICATION
     Dosage: 20, UNK
     Route: 048
  5. AMLODIPINE [Concomitant]
     Dosage: UNK
  6. ATORVASTATIN [Concomitant]
     Indication: PRODUCT USED FOR UNKNOWN INDICATION
     Dosage: 10 UNK, QD
     Route: 048
  7. ASPIRIN [Concomitant]
     Indication: PRODUCT USED FOR UNKNOWN INDICATION
     Dosage: 80, UNK
     Route: 048
  8. ADDERALL [Concomitant]
     Indication: MULTIPLE SCLEROSIS
     Dosage: 20 UNK, QD
     Route: 048
  9. ADDERALL [Concomitant]
     Indication: FATIGUE
  10. VITAMIN D [Concomitant]
     Indication: PRODUCT USED FOR UNKNOWN INDICATION
     Dosage: 1000 IU,UNK
     Route: 065
  11. TYSABRI [Concomitant]
     Indication: PRODUCT USED FOR UNKNOWN INDICATION

REACTIONS (15)
  - Amnesia [Unknown]
  - Syncope [Recovered/Resolved]
  - Blood pressure decreased [Recovered/Resolved]
  - White matter lesion [Unknown]
  - Clonus [Unknown]
  - Hypertonia [Unknown]
  - Dry mouth [Recovered/Resolved]
  - Chapped lips [Recovered/Resolved]
  - Fatigue [Not Recovered/Not Resolved]
  - Gait disturbance [Unknown]
  - Urinary incontinence [Not Recovered/Not Resolved]
  - Band sensation [Not Recovered/Not Resolved]
  - Muscular weakness [Unknown]
  - Hyperreflexia [Unknown]
  - Drug ineffective [Unknown]
